FAERS Safety Report 4323830-3 (Version None)
Quarter: 2004Q1

REPORT INFORMATION
  Report Type: 
  Country: None (occurrence: None)
  Receive Date: 20040324
  Receipt Date: 20040324
  Transmission Date: 20041129
  Serious: Yes (Hospitalization)
  Sender: FDA-Public Use
  Company Number: None

PATIENT
  Age: 70 Year
  Sex: Female
  Weight: 64.8644 kg

DRUGS (6)
  1. IRINOTECAN [Suspect]
     Indication: SMALL CELL LUNG CANCER STAGE UNSPECIFIED
     Dosage: 40 MG/M2 IV
     Route: 042
     Dates: start: 20040210
  2. IRINOTECAN [Suspect]
     Indication: SMALL CELL LUNG CANCER STAGE UNSPECIFIED
     Dosage: 40 MG/M2 IV
     Route: 042
     Dates: start: 20040217
  3. IRINOTECAN [Suspect]
     Indication: SMALL CELL LUNG CANCER STAGE UNSPECIFIED
     Dosage: 40 MG/M2 IV
     Route: 042
     Dates: start: 20040309
  4. IRINOTECAN [Suspect]
     Indication: SMALL CELL LUNG CANCER STAGE UNSPECIFIED
     Dosage: 40 MG/M2 IV
     Route: 042
     Dates: start: 20040316
  5. CISPLATIN [Suspect]
     Dosage: 60 MG/M2 IV
     Route: 042
     Dates: start: 20040210
  6. CISPLATIN [Suspect]
     Dosage: 60 MG/M2 IV
     Route: 042
     Dates: start: 20040309

REACTIONS (4)
  - DEHYDRATION [None]
  - DYSPHAGIA [None]
  - ODYNOPHAGIA [None]
  - OESOPHAGITIS [None]
